FAERS Safety Report 23319329 (Version 3)
Quarter: 2024Q4

REPORT INFORMATION
  Report Type: Spontaneous
  Country: US (occurrence: US)
  Receive Date: 20231220
  Receipt Date: 20241107
  Transmission Date: 20250115
  Serious: Yes (Hospitalization, Other)
  Sender: BAXTER
  Company Number: US-BAXTER-2023BAX038247

PATIENT
  Age: 72 Year
  Sex: Male
  Weight: 64.5 kg

DRUGS (18)
  1. CYCLOPHOSPHAMIDE [Suspect]
     Active Substance: CYCLOPHOSPHAMIDE
     Indication: B-cell type acute leukaemia
     Dosage: 250 MG/M2 CYCLIC (250 MG/M2, CYCLE 1,3,5,7, EVERY 12 HRS X 6 DOSES, DAYS 1-3), FIRST REGIMEN
     Route: 042
     Dates: start: 20230923
  2. CYCLOPHOSPHAMIDE [Suspect]
     Active Substance: CYCLOPHOSPHAMIDE
     Indication: Philadelphia chromosome negative
     Dosage: 250 MG/M2 CYCLIC (250 MG/M2, CYCLE 1,3,5,7, EVERY 12 HRS X 6 DOSES, DAYS 1-3), SECOND REGIMEN
     Route: 042
     Dates: start: 20230929, end: 20231001
  3. DOXORUBICIN [Suspect]
     Active Substance: DOXORUBICIN
     Indication: B-cell type acute leukaemia
     Dosage: 37.5 MG/M2 CYCLIC (37.5 MG/M2, CYCLE 1,3,5,7, DAY 4)
     Route: 042
  4. DOXORUBICIN [Suspect]
     Active Substance: DOXORUBICIN
     Indication: Philadelphia chromosome negative
  5. MESNA [Suspect]
     Active Substance: MESNA
     Indication: B-cell type acute leukaemia
     Dosage: 300 MG/M2 CYCLIC (300 MG/M2, CYCLE 1,3,5,7, DAYS 1-3)
     Route: 065
  6. MESNA [Suspect]
     Active Substance: MESNA
     Indication: Philadelphia chromosome negative
  7. VINCRISTINE SULFATE [Suspect]
     Active Substance: VINCRISTINE SULFATE
     Indication: B-cell type acute leukaemia
     Dosage: 2 MG CYCLIC (2 MG, CYCLE 1,3,5,7, DAY 1, DAY 8), FIRST REGIMEN
     Route: 042
     Dates: start: 20230923
  8. VINCRISTINE SULFATE [Suspect]
     Active Substance: VINCRISTINE SULFATE
     Indication: Philadelphia chromosome negative
     Dosage: 2 MG CYCLIC (2 MG, CYCLE 1,3,5,7, DAY 1, DAY 8), SECOND REGIMEN
     Route: 042
     Dates: start: 20230929, end: 20231006
  9. DEXAMETHASONE [Suspect]
     Active Substance: DEXAMETHASONE
     Indication: B-cell type acute leukaemia
     Dosage: 20 MG CYCLIC (20 MG IV OR PO, CYCLE 1,3,5,7, DAYS 1-4, DAYS 11-14), FIRST REGIMEN
     Route: 065
     Dates: start: 20230923
  10. DEXAMETHASONE [Suspect]
     Active Substance: DEXAMETHASONE
     Indication: Philadelphia chromosome negative
     Dosage: 20 MG CYCLIC (20 MG IV OR PO, CYCLE 1,3,5,7, DAYS 1-4, DAYS 11-14), SECOND REGIMEN
     Route: 065
     Dates: start: 20230929, end: 20231012
  11. METHOTREXATE SODIUM [Suspect]
     Active Substance: METHOTREXATE SODIUM
     Indication: B-cell type acute leukaemia
     Dosage: 500 MG/M2 CYCLIC (500 MG/M2, CYCLE 2,4,6,8, DAY 1), FIRST REGIMEN
     Route: 042
  12. METHOTREXATE SODIUM [Suspect]
     Active Substance: METHOTREXATE SODIUM
     Indication: Philadelphia chromosome negative
     Dosage: 12 MG CYCLIC (12 MG, CYCLE 1-4, DAY 2, DAY 8), SECOND REGIMEN
     Route: 065
  13. CYTARABINE [Suspect]
     Active Substance: CYTARABINE
     Indication: B-cell type acute leukaemia
     Dosage: UNK, CYCLIC (1 G/M2/DOSE, CYCLE 2,4,6,8, EVERY 12 HRS X4, DAYS 2,3), FIRST REGIMEN
     Route: 042
  14. CYTARABINE [Suspect]
     Active Substance: CYTARABINE
     Indication: Philadelphia chromosome negative
     Dosage: 100 MG CYCLIC (100 MG, CYCLE 1-4, DAY2, DAY 8), SECOND REGIMEN
     Route: 065
  15. METHYLPREDNISOLONE SODIUM SUCCINATE [Suspect]
     Active Substance: METHYLPREDNISOLONE SODIUM SUCCINATE
     Indication: B-cell type acute leukaemia
     Dosage: 50 MG CYCLIC (50 MG, CYCLE 2,4,6,8, EVERY 12 HRS X 6 DOSES, DAYS 1-3)
     Route: 042
  16. METHYLPREDNISOLONE SODIUM SUCCINATE [Suspect]
     Active Substance: METHYLPREDNISOLONE SODIUM SUCCINATE
     Indication: Philadelphia chromosome negative
  17. RITUXIMAB [Suspect]
     Active Substance: RITUXIMAB
     Indication: B-cell type acute leukaemia
     Dosage: 375 MG/M2 CYCLIC (375 MG/M2, CYCLE 1-4, DAY 1, DAY 8)
     Route: 042
  18. RITUXIMAB [Suspect]
     Active Substance: RITUXIMAB
     Indication: Philadelphia chromosome negative

REACTIONS (6)
  - Fall [Recovering/Resolving]
  - Tachypnoea [Unknown]
  - Pleural effusion [Recovering/Resolving]
  - Confusional state [Recovered/Resolved]
  - Pneumonia [Recovering/Resolving]
  - Dyspnoea [Unknown]

NARRATIVE: CASE EVENT DATE: 20231103
